FAERS Safety Report 15786491 (Version 1)
Quarter: 2019Q1

REPORT INFORMATION
  Report Type: Spontaneous
  Country: IL (occurrence: IL)
  Receive Date: 20190103
  Receipt Date: 20190103
  Transmission Date: 20190417
  Serious: Yes (Hospitalization)
  Sender: FDA-Public Use
  Company Number: PHHY2018IL198564

PATIENT
  Age: 21 Year
  Sex: Female
  Weight: 54.4 kg

DRUGS (6)
  1. QUETIAPINE. [Concomitant]
     Active Substance: QUETIAPINE
     Dosage: 25 MG, QD
     Route: 065
  2. BUPROPION. [Suspect]
     Active Substance: BUPROPION
     Dosage: (3,000-4,500 MG), QD
     Route: 065
  3. QUETIAPINE. [Concomitant]
     Active Substance: QUETIAPINE
     Indication: SUICIDAL BEHAVIOUR
     Dosage: 200 MG, QD
     Route: 065
  4. BUPROPION. [Suspect]
     Active Substance: BUPROPION
     Indication: DECREASED APPETITE
     Dosage: (300-450 MG)
     Route: 065
  5. FLUOXETINE [Concomitant]
     Active Substance: FLUOXETINE HYDROCHLORIDE
     Indication: PRODUCT USED FOR UNKNOWN INDICATION
     Dosage: 20 MG, QD
     Route: 065
  6. BUPROPION. [Suspect]
     Active Substance: BUPROPION
     Indication: WEIGHT DECREASED
     Dosage: (1,200?1,500 MG), QD
     Route: 065

REACTIONS (10)
  - Suicide attempt [Unknown]
  - Tachycardia [Unknown]
  - Amnesia [Unknown]
  - Product use in unapproved indication [Unknown]
  - Generalised tonic-clonic seizure [Recovered/Resolved]
  - Drug abuse [Unknown]
  - Anxiety [Unknown]
  - Weight decreased [Recovering/Resolving]
  - Headache [Unknown]
  - Insomnia [Unknown]
